FAERS Safety Report 12033190 (Version 1)
Quarter: 2016Q1

REPORT INFORMATION
  Report Type: Spontaneous
  Country: US (occurrence: US)
  Receive Date: 20160207
  Receipt Date: 20160207
  Transmission Date: 20160526
  Serious: No
  Sender: FDA-Public Use
  Company Number: US-ABBVIE-15K-163-1515142-00

PATIENT

DRUGS (1)
  1. HUMIRA [Suspect]
     Active Substance: ADALIMUMAB
     Indication: PRODUCT USED FOR UNKNOWN INDICATION
     Route: 058
     Dates: start: 2015

REACTIONS (7)
  - Injection site erythema [Unknown]
  - Lymphadenopathy [Not Recovered/Not Resolved]
  - Injection site warmth [Unknown]
  - Injection site pruritus [Unknown]
  - Local swelling [Not Recovered/Not Resolved]
  - Local swelling [Recovered/Resolved]
  - Injection site papule [Unknown]

NARRATIVE: CASE EVENT DATE: 2015
